FAERS Safety Report 7655703-2 (Version None)
Quarter: 2011Q3

REPORT INFORMATION
  Report Type: 
  Country: None (occurrence: None)
  Receive Date: 20110804
  Receipt Date: 20110726
  Transmission Date: 20111222
  Serious: Yes (Hospitalization, Disabling, Other)
  Sender: FDA-Public Use
  Company Number: NL-GENZYME-CLOF-1001506

PATIENT
  Sex: Male
  Weight: 95 kg

DRUGS (12)
  1. EVOLTRA [Suspect]
     Indication: ACUTE MYELOID LEUKAEMIA
     Dosage: 26 MG, QD
     Route: 065
     Dates: end: 20101025
  2. FLUCONAZOLE [Concomitant]
     Indication: PRODUCT USED FOR UNKNOWN INDICATION
     Dosage: 400 MG, UNK
     Route: 048
     Dates: start: 20110302, end: 20110319
  3. AMITRIPTYLINE HCL [Concomitant]
     Indication: HEADACHE
     Dosage: 25 MG, UNK
     Route: 048
     Dates: start: 20110302, end: 20110319
  4. CILASTATIN [Concomitant]
     Indication: FEBRILE NEUTROPENIA
     Dosage: 500 MG, QID
     Route: 042
     Dates: start: 20110314, end: 20110317
  5. IMIPENEM [Concomitant]
     Indication: FEBRILE NEUTROPENIA
     Dosage: 500 MG, QID
     Route: 042
     Dates: start: 20110314, end: 20110317
  6. AMSACRINE [Suspect]
     Indication: ACUTE MYELOID LEUKAEMIA
     Dosage: 270 MG, QDX3
     Route: 042
     Dates: start: 20110306, end: 20110308
  7. AUGMENTIN '125' [Concomitant]
     Indication: CAECITIS
     Dosage: 2 G, QID
     Route: 042
     Dates: start: 20110317, end: 20110319
  8. EVOLTRA [Suspect]
     Dosage: UNK
     Route: 065
     Dates: start: 20100101, end: 20101102
  9. CYTARABINE [Suspect]
     Indication: ACUTE MYELOID LEUKAEMIA
     Dosage: 2300 MG, UNK
     Route: 042
     Dates: start: 20110303, end: 20110308
  10. CIPROFLOXACIN [Concomitant]
     Indication: PRODUCT USED FOR UNKNOWN INDICATION
     Dosage: 500 MG, BID
     Route: 048
     Dates: start: 20110302, end: 20110319
  11. PANTOPRAZOLE [Concomitant]
     Indication: DYSPEPSIA
     Dosage: 40 MG, UNK
     Route: 048
     Dates: start: 20110302, end: 20110319
  12. METOPROLOL TARTRATE [Concomitant]
     Indication: CARDIAC FAILURE
     Dosage: 100 MG, UNK
     Route: 048
     Dates: start: 20110302, end: 20110319

REACTIONS (3)
  - PANCYTOPENIA [None]
  - HEPATIC ENZYME INCREASED [None]
  - HAEMATURIA [None]
